FAERS Safety Report 26026056 (Version 1)
Quarter: 2025Q4

REPORT INFORMATION
  Report Type: Spontaneous
  Country: US (occurrence: US)
  Receive Date: 20251111
  Receipt Date: 20251111
  Transmission Date: 20260118
  Serious: No
  Sender: PFIZER
  Company Number: US-PFIZER INC-202500165267

PATIENT
  Age: 60 Year
  Sex: Male
  Weight: 84.8 kg

DRUGS (1)
  1. LORBRENA [Suspect]
     Active Substance: LORLATINIB
     Indication: Lung adenocarcinoma
     Dosage: 100 MG, 1X/DAY
     Route: 048

REACTIONS (1)
  - Blood cholesterol increased [Unknown]
